FAERS Safety Report 20443168 (Version 8)
Quarter: 2023Q1

REPORT INFORMATION
  Report Type: Other
  Country: JP (occurrence: JP)
  Receive Date: 20220208
  Receipt Date: 20230131
  Transmission Date: 20230418
  Serious: Yes (Hospitalization, Other)
  Sender: FDA-Public Use
  Company Number: JP-CHUGAI-2021021916

PATIENT
  Age: 80 Year
  Sex: Female
  Weight: 50.9 kg

DRUGS (6)
  1. ATEZOLIZUMAB [Suspect]
     Active Substance: ATEZOLIZUMAB
     Indication: Lung adenocarcinoma
     Dosage: MOST RECENT DOSE: 22/MAR/2022
     Route: 041
     Dates: start: 20210818
  2. CARBOPLATIN [Suspect]
     Active Substance: CARBOPLATIN
     Indication: Lung adenocarcinoma
     Dosage: 500 MILLIGRAM
     Route: 041
     Dates: start: 20210818
  3. CARBOPLATIN [Suspect]
     Active Substance: CARBOPLATIN
     Dosage: 500 MILLIGRAM?MOST RECENT DOSE: 20/OCT/2021
     Route: 041
     Dates: start: 20210929, end: 20211020
  4. PEMETREXED DISODIUM [Suspect]
     Active Substance: PEMETREXED DISODIUM
     Indication: Lung adenocarcinoma
     Dosage: 720 MILLIGRAM
     Route: 041
     Dates: start: 20210818
  5. PEMETREXED DISODIUM [Suspect]
     Active Substance: PEMETREXED DISODIUM
     Dosage: 720 MILLIGRAM
     Route: 041
     Dates: start: 20210929, end: 20211020
  6. PEMETREXED DISODIUM [Suspect]
     Active Substance: PEMETREXED DISODIUM
     Dosage: 720 MILLIGRAM?MOST RECENT DOSE : 22/MAR/2022
     Route: 041
     Dates: start: 20211110

REACTIONS (7)
  - Pulmonary oedema [Recovered/Resolved]
  - Anaemia [Recovering/Resolving]
  - Hypokalaemia [Recovered/Resolved]
  - Malaise [Recovered/Resolved]
  - White blood cell count decreased [Recovered/Resolved]
  - Platelet count decreased [Recovered/Resolved]
  - Hyponatraemia [Recovered/Resolved]

NARRATIVE: CASE EVENT DATE: 20210824
